FAERS Safety Report 25223197 (Version 1)
Quarter: 2025Q2

REPORT INFORMATION
  Report Type: Spontaneous
  Country: PT (occurrence: PT)
  Receive Date: 20250422
  Receipt Date: 20250422
  Transmission Date: 20250716
  Serious: Yes (Other)
  Sender: COOPERSURGICAL
  Company Number: PT-COOPERSURGICAL, INC.-2025CPS002943

PATIENT
  Age: 49 Year
  Sex: Female

DRUGS (1)
  1. COPPER [Suspect]
     Active Substance: COPPER
     Indication: Contraception
     Route: 015

REACTIONS (2)
  - Tubo-ovarian abscess [Unknown]
  - Anaemia [Unknown]
